FAERS Safety Report 24003447 (Version 2)
Quarter: 2024Q2

REPORT INFORMATION
  Report Type: Spontaneous
  Country: CA (occurrence: CA)
  Receive Date: 20240624
  Receipt Date: 20240627
  Transmission Date: 20240716
  Serious: Yes (Other)
  Sender: FDA-Public Use
  Company Number: CA-CELLTRION INC.-2024CA014787

PATIENT

DRUGS (1)
  1. TRASTUZUMAB [Suspect]
     Active Substance: TRASTUZUMAB
     Indication: HER2 positive breast cancer
     Dosage: 405.0 MILLIGRAM 1 EVERY 3 WEEKS
     Route: 042

REACTIONS (5)
  - Immune system disorder [Unknown]
  - Nasal obstruction [Unknown]
  - Oropharyngeal pain [Unknown]
  - COVID-19 [Unknown]
  - Cough [Unknown]
